FAERS Safety Report 4473468-2 (Version None)
Quarter: 2004Q3

REPORT INFORMATION
  Report Type: 
  Country: None (occurrence: None)
  Receive Date: 20040920
  Receipt Date: 20031204
  Transmission Date: 20050211
  Serious: Yes (Hospitalization)
  Sender: FDA-Public Use
  Company Number: S03-USA-05040-01

PATIENT
  Age: 48 Year
  Sex: Male

DRUGS (4)
  1. CELEXA [Suspect]
     Indication: DEPRESSION
     Dosage: 60 MG QD PO
     Route: 048
     Dates: end: 20030821
  2. LEXAPRO [Suspect]
     Indication: DEPRESSION
     Dosage: 10 MG QD PO
     Route: 048
     Dates: start: 20030822, end: 20030826
  3. GABAPENTIN [Concomitant]
  4. ALBUTEROL [Concomitant]

REACTIONS (1)
  - HYPONATRAEMIA [None]
